FAERS Safety Report 7494201-6 (Version None)
Quarter: 2011Q2

REPORT INFORMATION
  Report Type: 
  Country: None (occurrence: None)
  Receive Date: 20110520
  Receipt Date: 20110516
  Transmission Date: 20111010
  Serious: Yes (Other)
  Sender: FDA-Public Use
  Company Number: US-PFIZER INC-2011096350

PATIENT
  Sex: Female
  Weight: 83.9 kg

DRUGS (6)
  1. NORCO [Concomitant]
     Indication: NECK PAIN
  2. PARNATE [Concomitant]
     Indication: DEPRESSION
     Dosage: 70 MG, 1X/DAY
  3. NORCO [Concomitant]
     Indication: PAIN IN EXTREMITY
     Dosage: 10/325MG 1-2 TABLETS EVERY 6 HOURS
  4. LYRICA [Suspect]
     Indication: FIBROMYALGIA
     Dosage: 150 MG, 3X/DAY
     Dates: start: 20110401
  5. NORCO [Concomitant]
     Indication: MUSCULOSKELETAL PAIN
  6. SYNTHROID [Concomitant]
     Indication: HYPOTHYROIDISM
     Dosage: UNK

REACTIONS (7)
  - URTICARIA [None]
  - WHEEZING [None]
  - SWELLING FACE [None]
  - DYSPNOEA [None]
  - RASH [None]
  - DYSPHONIA [None]
  - BLISTER [None]
